FAERS Safety Report 23434248 (Version 1)
Quarter: 2024Q1

REPORT INFORMATION
  Report Type: Spontaneous
  Country: CA (occurrence: CA)
  Receive Date: 20240123
  Receipt Date: 20240123
  Transmission Date: 20240409
  Serious: Yes (Hospitalization, Other)
  Sender: FDA-Public Use
  Company Number: CA-PFIZER INC-202400021043

PATIENT
  Age: 67 Year
  Sex: Female

DRUGS (4)
  1. XELJANZ [Suspect]
     Active Substance: TOFACITINIB CITRATE
     Indication: Rheumatoid arthritis
     Dosage: 5 MG, 2X/DAY
     Route: 048
     Dates: start: 202212
  2. METHOTREXATE [Concomitant]
     Active Substance: METHOTREXATE
     Dosage: 1 DF
  3. PREDNISONE [Concomitant]
     Active Substance: PREDNISONE
     Dosage: UNK
  4. SENOKOT [Concomitant]
     Active Substance: SENNOSIDES
     Dosage: 1 DF

REACTIONS (4)
  - Sepsis [Unknown]
  - Nephrolithiasis [Unknown]
  - Intestinal ischaemia [Unknown]
  - Gangrene [Unknown]

NARRATIVE: CASE EVENT DATE: 20230101
